FAERS Safety Report 8476029-3 (Version None)
Quarter: 2012Q2

REPORT INFORMATION
  Report Type: 
  Country: None (occurrence: None)
  Receive Date: 20120628
  Receipt Date: 20120620
  Transmission Date: 20120825
  Serious: Yes (Other)
  Sender: FDA-Public Use
  Company Number: US-JNJFOC-20120520810

PATIENT
  Sex: Female
  Weight: 87 kg

DRUGS (21)
  1. XARELTO [Suspect]
     Indication: KNEE ARTHROPLASTY
     Route: 048
     Dates: start: 20120102, end: 20120104
  2. VITAMIN D [Concomitant]
     Indication: MEDICAL DIET
  3. GLYCOPYRROLATE [Concomitant]
     Indication: SECRETION DISCHARGE
     Dates: start: 20120102
  4. OXYCODONE HCL AND ACETAMINOPHEN [Concomitant]
     Indication: PAIN
     Dates: start: 20120104
  5. BACITRACIN [Concomitant]
     Indication: WOUND TREATMENT
     Dates: start: 20120102
  6. XARELTO [Suspect]
     Indication: THROMBOSIS PROPHYLAXIS
     Route: 048
     Dates: start: 20120102, end: 20120104
  7. NEURONTIN [Concomitant]
     Indication: PAIN
  8. MIDAZOLAM [Concomitant]
     Indication: ANAESTHESIA
     Dates: start: 20120102
  9. QUELICIN [Concomitant]
     Indication: ANAESTHESIA
     Dates: start: 20120102
  10. DEXAMETHASONE [Concomitant]
     Indication: PROPHYLAXIS OF NAUSEA AND VOMITING
     Dates: start: 20120102
  11. HYDROCODONE BITARTRATE AND ACETAMINOPHEN [Concomitant]
     Indication: PAIN
     Dates: start: 20120102, end: 20120103
  12. LISINOPRIL [Concomitant]
     Indication: HYPERTENSION
  13. CEFAZOLIN [Concomitant]
     Indication: PREMEDICATION
     Dates: start: 20120102, end: 20120103
  14. VECURONIUM BROMIDE [Concomitant]
     Indication: ANAESTHESIA
     Dates: start: 20120102
  15. BUPIVACAINE HYDROCHLORIDE W/EPINEPHRINE [Concomitant]
     Indication: ANAESTHESIA
     Dates: start: 20120102
  16. FENTANYL [Concomitant]
     Indication: ANAESTHESIA
     Dates: start: 20120102
  17. PROPOFOL [Concomitant]
     Indication: ANAESTHESIA
     Dates: start: 20120102
  18. XYLOCAINE [Concomitant]
     Indication: ANAESTHESIA
     Dates: start: 20120102
  19. NEOSTIGMINE [Concomitant]
     Indication: ANAESTHESIA
     Dates: start: 20120102
  20. LACTATED RINGER'S [Concomitant]
     Indication: DEHYDRATION
     Dates: start: 20120102, end: 20120103
  21. ONDANSETRON (ZOFRAN) [Concomitant]
     Indication: PROPHYLAXIS OF NAUSEA AND VOMITING

REACTIONS (1)
  - PULMONARY EMBOLISM [None]
